FAERS Safety Report 20906386 (Version 1)
Quarter: 2022Q2

REPORT INFORMATION
  Report Type: Spontaneous
  Country: US (occurrence: US)
  Receive Date: 20220602
  Receipt Date: 20220602
  Transmission Date: 20220721
  Serious: Yes (Other)
  Sender: FDA-Public Use
  Company Number: US-SLATE RUN PHARMACEUTICALS-22US001108

PATIENT

DRUGS (7)
  1. DESVENLAFAXINE SUCCINATE [Suspect]
     Active Substance: DESVENLAFAXINE SUCCINATE
     Indication: Product used for unknown indication
     Dosage: 25 MILLIGRAM
  2. BUPROPION HYDROCHLORIDE [Suspect]
     Active Substance: BUPROPION HYDROCHLORIDE
     Indication: Product used for unknown indication
     Dosage: 300 MILLIGRAM
  3. TRAZODONE [Suspect]
     Active Substance: TRAZODONE HYDROCHLORIDE
     Indication: Anxiety
     Dosage: 50 MILLIGRAM
  4. TRAZODONE [Suspect]
     Active Substance: TRAZODONE HYDROCHLORIDE
     Dosage: 200 MILLIGRAM
  5. QUETIAPINE [Suspect]
     Active Substance: QUETIAPINE
     Indication: Anxiety
     Dosage: 25 MILLIGRAM, BID
  6. CLONAZEPAM [Suspect]
     Active Substance: CLONAZEPAM
     Indication: Product used for unknown indication
     Dosage: 0.5 MILLIGRAM, NIGHTLY
  7. CLONAZEPAM [Suspect]
     Active Substance: CLONAZEPAM
     Dosage: 1.0 MILLIGRAM, NIGHTLY

REACTIONS (5)
  - Dementia [Recovering/Resolving]
  - Fall [Recovering/Resolving]
  - Compression fracture [Recovering/Resolving]
  - Panic attack [Recovering/Resolving]
  - Anxiety [Recovering/Resolving]
